FAERS Safety Report 20840647 (Version 1)
Quarter: 2022Q2

REPORT INFORMATION
  Report Type: Spontaneous
  Country: US (occurrence: US)
  Receive Date: 20220517
  Receipt Date: 20220517
  Transmission Date: 20220721
  Serious: No
  Sender: FDA-Public Use
  Company Number: US-PFIZER INC-202101654834

PATIENT
  Age: 78 Year
  Sex: Male

DRUGS (1)
  1. VYNDAMAX [Suspect]
     Active Substance: TAFAMIDIS
     Dosage: 61 MG
     Dates: start: 20211122, end: 20211124

REACTIONS (4)
  - Drug hypersensitivity [Unknown]
  - Macule [Unknown]
  - Rash papular [Unknown]
  - Rash [Unknown]

NARRATIVE: CASE EVENT DATE: 20210101
